FAERS Safety Report 5945855-4 (Version None)
Quarter: 2008Q4

REPORT INFORMATION
  Report Type: 
  Country: None (occurrence: None)
  Receive Date: 20081106
  Receipt Date: 20081030
  Transmission Date: 20090506
  Serious: Yes (Life-Threatening, Hospitalization, Other)
  Sender: FDA-Public Use
  Company Number: WAES 0810PER00003

PATIENT
  Age: 21 Year
  Sex: Female

DRUGS (6)
  1. TAB MK-0518 [Suspect]
     Indication: HIV INFECTION
     Dosage: 400 MG/BID
     Route: 048
     Dates: start: 20070529
  2. TRUVADA [Suspect]
     Indication: HIV INFECTION
     Dosage: 200/300 MG/DAILY
     Route: 048
     Dates: start: 20070529
  3. PLACEBO [Suspect]
  4. CLONAZEPAM [Concomitant]
  5. SERTRALINE HCL [Concomitant]
  6. VITAMINS (UNSPECIFIED) [Concomitant]

REACTIONS (2)
  - POISONING [None]
  - SUICIDE ATTEMPT [None]
